FAERS Safety Report 25502706 (Version 2)
Quarter: 2025Q3

REPORT INFORMATION
  Report Type: Spontaneous
  Country: EU (occurrence: EU)
  Receive Date: 20250702
  Receipt Date: 20250823
  Transmission Date: 20251021
  Serious: Yes (Hospitalization, Other)
  Sender: CELLTRION
  Company Number: EU-CELLTRION INC.-2025PT003912

PATIENT

DRUGS (5)
  1. ADALIMUMAB [Suspect]
     Active Substance: ADALIMUMAB
     Indication: Psoriatic arthropathy
     Dosage: 40 MILLIGRAM, Q2WK (FORTNIGHTLY)
     Route: 058
     Dates: start: 202301, end: 2024
  2. ADALIMUMAB [Suspect]
     Active Substance: ADALIMUMAB
     Route: 065
     Dates: start: 202301
  3. METHOTREXATE [Concomitant]
     Active Substance: METHOTREXATE
     Indication: Psoriatic arthropathy
     Dosage: 15 MG, WEEKLY
     Route: 065
     Dates: start: 202301
  4. AMOXICILLIN\CLAVULANIC ACID [Concomitant]
     Active Substance: AMOXICILLIN\CLAVULANIC ACID
     Indication: Pneumonia
     Route: 065
     Dates: start: 2024
  5. AZITHROMYCIN [Concomitant]
     Active Substance: AZITHROMYCIN
     Indication: Pneumonia
     Route: 065

REACTIONS (4)
  - Sarcoid-like reaction [Recovering/Resolving]
  - Pulmonary sarcoidosis [Recovered/Resolved]
  - Sarcoidosis [Recovering/Resolving]
  - Nail psoriasis [Unknown]

NARRATIVE: CASE EVENT DATE: 20240101
